FAERS Safety Report 10489396 (Version 1)
Quarter: 2014Q3

REPORT INFORMATION
  Report Type: Spontaneous
  Country: ES (occurrence: None)
  Receive Date: 20140930
  Receipt Date: 20140930
  Transmission Date: 20150326
  Serious: Yes (Hospitalization)
  Sender: FDA-Public Use
  Company Number: IPC201409-000493

PATIENT
  Age: 84 Year
  Sex: Female

DRUGS (5)
  1. ENALAPRIL (ENALAPRIL) (ENALAPRIL) [Concomitant]
     Active Substance: ENALAPRIL
  2. METFORMIN HYDROCHLORIDE (METFORMIN HYDROCHLORIDE) (METFORMIN HYDROCHLORIDE) [Suspect]
     Active Substance: METFORMIN HYDROCHLORIDE
  3. INSULIN [Suspect]
     Active Substance: INSULIN NOS
  4. POSACONAZOLE (POSACONAZOLE) (POSACONAZOLE) [Concomitant]
     Indication: PROPHYLAXIS
  5. SIMVASTATIN (SIMVASTATIN) (SIMVASTATIN) [Suspect]
     Active Substance: SIMVASTATIN

REACTIONS (4)
  - Asthenia [None]
  - Paraparesis [None]
  - Rhabdomyolysis [None]
  - Drug interaction [None]
